FAERS Safety Report 9474620 (Version 2)
Quarter: 2013Q4

REPORT INFORMATION
  Report Type: Spontaneous
  Country: US (occurrence: US)
  Receive Date: 20130823
  Receipt Date: 20131030
  Transmission Date: 20140711
  Serious: No
  Sender: FDA-Public Use
  Company Number: US-PFIZER INC-2013242885

PATIENT
  Age: 53 Year
  Sex: Female
  Weight: 74.83 kg

DRUGS (6)
  1. ADVIL ALLERGY AND CONGESTION RELIEF [Suspect]
     Indication: SINUS HEADACHE
     Dosage: 8/400/20 MG (2 TABLETS OF 4/200/10MG TOGETHER), TWO TIMES A DAY
     Route: 048
     Dates: start: 2013, end: 2013
  2. ADVIL ALLERGY AND CONGESTION RELIEF [Suspect]
     Indication: NASAL OEDEMA
     Dosage: 8/400/20 MG (TWO TABLETS OF 4/200/10MG TOGETHER), TWO TIMES A DAY
     Route: 048
     Dates: start: 20130818
  3. ADVIL ALLERGY AND CONGESTION RELIEF [Suspect]
     Indication: NASAL CONGESTION
  4. ADVIL ALLERGY AND CONGESTION RELIEF [Suspect]
     Indication: SNEEZING
  5. ADVIL ALLERGY AND CONGESTION RELIEF [Suspect]
     Indication: RHINORRHOEA
  6. ADVIL ALLERGY AND CONGESTION RELIEF [Suspect]
     Indication: HEADACHE

REACTIONS (2)
  - Extra dose administered [Unknown]
  - Drug ineffective [Not Recovered/Not Resolved]
